FAERS Safety Report 5304418-4 (Version None)
Quarter: 2007Q2

REPORT INFORMATION
  Report Type: 
  Country: None (occurrence: None)
  Receive Date: 20070423
  Receipt Date: 20070413
  Transmission Date: 20071010
  Serious: Yes (Hospitalization)
  Sender: FDA-Public Use
  Company Number: US-ROCHE-492799

PATIENT
  Age: 53 Year
  Sex: Male

DRUGS (3)
  1. XENICAL [Suspect]
     Indication: WEIGHT CONTROL
     Dosage: PATIENT TOOK 1 TABLET 2-3 TIMES A DAY.
     Route: 048
     Dates: start: 20050615
  2. COUMADIN [Concomitant]
  3. 1 CONCOMITANT DRUG [Concomitant]
     Dosage: PATIENT IS ON BLOOD PRESSURE MEDICATION.

REACTIONS (2)
  - DYSPNOEA [None]
  - RECTAL DISCHARGE [None]
